FAERS Safety Report 24227346 (Version 1)
Quarter: 2024Q3

REPORT INFORMATION
  Report Type: Report from Study
  Country: BR (occurrence: BR)
  Receive Date: 20240820
  Receipt Date: 20240820
  Transmission Date: 20241017
  Serious: Yes (Death, Life-Threatening)
  Sender: SERVIER
  Company Number: BR-SERVIER DO BRASIL-S24010158

PATIENT

DRUGS (2)
  1. PEGASPARGASE [Suspect]
     Active Substance: PEGASPARGASE
     Indication: Acute lymphocytic leukaemia
     Dosage: 2450 U
     Route: 065
     Dates: start: 20240729
  2. PREDNISONE [Concomitant]
     Active Substance: PREDNISONE
     Indication: Product used for unknown indication
     Dosage: 140 MG
     Route: 065
     Dates: start: 20240711

REACTIONS (2)
  - Cerebral venous thrombosis [Fatal]
  - Infection [Recovering/Resolving]

NARRATIVE: CASE EVENT DATE: 20240808
